FAERS Safety Report 8785708 (Version 2)
Quarter: 2012Q4

REPORT INFORMATION
  Report Type: Report from Study
  Country: CA (occurrence: CA)
  Receive Date: 20120914
  Receipt Date: 20120924
  Transmission Date: 20130627
  Serious: Yes (Other)
  Sender: FDA-Public Use
  Company Number: CA-JNJFOC-20120903176

PATIENT
  Sex: Male
  Weight: 67.13 kg

DRUGS (17)
  1. REMICADE [Suspect]
     Indication: COLITIS ULCERATIVE
     Route: 042
  2. REMICADE [Suspect]
     Indication: COLITIS ULCERATIVE
     Route: 042
  3. REMICADE [Suspect]
     Indication: COLITIS ULCERATIVE
     Route: 042
     Dates: start: 20120624
  4. REMICADE [Suspect]
     Indication: COLITIS
     Route: 042
  5. REMICADE [Suspect]
     Indication: COLITIS
     Route: 042
     Dates: start: 20120624
  6. REMICADE [Suspect]
     Indication: COLITIS
     Route: 042
  7. REMICADE [Suspect]
     Indication: OSTEOARTHRITIS
     Route: 042
  8. REMICADE [Suspect]
     Indication: OSTEOARTHRITIS
     Route: 042
  9. REMICADE [Suspect]
     Indication: OSTEOARTHRITIS
     Route: 042
     Dates: start: 20120624
  10. REMICADE [Suspect]
     Indication: RHEUMATOID ARTHRITIS
     Route: 042
  11. REMICADE [Suspect]
     Indication: RHEUMATOID ARTHRITIS
     Route: 042
     Dates: start: 20120624
  12. REMICADE [Suspect]
     Indication: RHEUMATOID ARTHRITIS
     Route: 042
  13. METHOTREXATE [Suspect]
     Indication: PRODUCT USED FOR UNKNOWN INDICATION
     Route: 058
  14. METHOTREXATE [Suspect]
     Indication: PRODUCT USED FOR UNKNOWN INDICATION
     Route: 058
  15. METHOTREXATE [Suspect]
     Indication: PRODUCT USED FOR UNKNOWN INDICATION
     Route: 058
  16. PREDNISONE [Concomitant]
     Route: 048
  17. SALOFALK [Concomitant]
     Route: 048

REACTIONS (7)
  - Pruritus generalised [Not Recovered/Not Resolved]
  - Blindness [Not Recovered/Not Resolved]
  - Gait disturbance [Unknown]
  - Insomnia [Unknown]
  - Asthenia [Unknown]
  - Discomfort [Unknown]
  - Rash [Not Recovered/Not Resolved]
